FAERS Safety Report 5977630-9 (Version None)
Quarter: 2008Q4

REPORT INFORMATION
  Report Type: 
  Country: None (occurrence: None)
  Receive Date: 20081203
  Receipt Date: 20081126
  Transmission Date: 20090506
  Serious: Yes (Hospitalization)
  Sender: FDA-Public Use
  Company Number: GB-MERCK-0811GBR00091

PATIENT
  Age: 61 Year
  Sex: Female

DRUGS (14)
  1. FOSAMAX [Suspect]
     Indication: OSTEOPOROSIS
     Route: 048
     Dates: start: 20080930, end: 20081112
  2. TENOXICAM [Suspect]
     Indication: SPINAL OSTEOARTHRITIS
     Route: 065
     Dates: start: 20060214, end: 20081112
  3. CALCIUM CARBONATE AND CHOLECALCIFEROL [Concomitant]
     Route: 065
  4. AMITRIPTYLINE HYDROCHLORIDE [Concomitant]
     Route: 065
  5. BACLOFEN [Concomitant]
     Route: 065
  6. BETAHISTINE HYDROCHLORIDE [Concomitant]
     Route: 065
  7. ACETAMINOPHEN AND CODEINE PHOSPHATE [Concomitant]
     Route: 065
  8. DIAZEPAM [Concomitant]
     Route: 065
  9. FERROUS SULFATE [Concomitant]
     Route: 065
  10. FLUOXETINE [Concomitant]
     Route: 065
  11. LANSOPRAZOLE [Concomitant]
     Route: 065
  12. ACETAMINOPHEN [Concomitant]
     Route: 065
  13. PROCHLORPERAZINE [Concomitant]
     Route: 065
  14. TRAMADOL HYDROCHLORIDE [Concomitant]
     Route: 065

REACTIONS (3)
  - DUODENITIS [None]
  - GASTRIC ULCER [None]
  - GASTRITIS [None]
